FAERS Safety Report 9909530 (Version 3)
Quarter: 2015Q3

REPORT INFORMATION
  Report Type: Spontaneous
  Country: US (occurrence: US)
  Receive Date: 20140219
  Receipt Date: 20150812
  Transmission Date: 20151125
  Serious: No
  Sender: FDA-Public Use
  Company Number: US-GILEAD-2012-0055456

PATIENT
  Age: 68 Year
  Sex: Female
  Weight: 126.53 kg

DRUGS (8)
  1. LETAIRIS [Suspect]
     Active Substance: AMBRISENTAN
     Indication: PULMONARY HYPERTENSION
     Dosage: 5 MG, UNK
     Route: 048
     Dates: start: 20120517
  2. DUONEB [Concomitant]
     Active Substance: ALBUTEROL SULFATE\IPRATROPIUM BROMIDE
  3. ADCIRCA [Concomitant]
     Active Substance: TADALAFIL
  4. COMBIVENT [Concomitant]
     Active Substance: ALBUTEROL SULFATE\IPRATROPIUM BROMIDE
  5. ATENOLOL. [Concomitant]
     Active Substance: ATENOLOL
     Indication: HYPERTENSION
  6. FLONASE [Concomitant]
     Active Substance: FLUTICASONE PROPIONATE
  7. AMBIEN CR [Concomitant]
     Active Substance: ZOLPIDEM TARTRATE
     Indication: SLEEP DISORDER
  8. HUMULIN N [Concomitant]
     Active Substance: INSULIN HUMAN

REACTIONS (5)
  - Ocular discomfort [Not Recovered/Not Resolved]
  - Peripheral swelling [Not Recovered/Not Resolved]
  - Hypotension [Recovered/Resolved with Sequelae]
  - Nasal congestion [Not Recovered/Not Resolved]
  - Photopsia [Unknown]

NARRATIVE: CASE EVENT DATE: 20120519
